FAERS Safety Report 11773854 (Version 2)
Quarter: 2016Q1

REPORT INFORMATION
  Report Type: Report from Study
  Country: BR (occurrence: BR)
  Receive Date: 20151124
  Receipt Date: 20160205
  Transmission Date: 20160525
  Serious: Yes (Other)
  Sender: FDA-Public Use
  Company Number: BR-UCBSA-2015037143

PATIENT
  Age: 38 Year
  Sex: Female
  Weight: 81 kg

DRUGS (2)
  1. CERTOLIZUMAB PEGOL [Suspect]
     Active Substance: CERTOLIZUMAB PEGOL
     Indication: RHEUMATOID ARTHRITIS
     Dosage: 200 MG, EV 2 WEEKS(QOW), SOLUTION FOR INJECTION
     Dates: start: 201508, end: 20151002
  2. ITRASPOR [Concomitant]
     Active Substance: ITRACONAZOLE
     Indication: CANDIDA INFECTION
     Dosage: UNK, 2X/DAY (BID)
     Route: 048
     Dates: start: 20151220, end: 20151220

REACTIONS (5)
  - Candida infection [Not Recovered/Not Resolved]
  - Pruritus [Not Recovered/Not Resolved]
  - Klebsiella infection [Recovered/Resolved]
  - Groin pain [Not Recovered/Not Resolved]
  - Urinary tract infection [Unknown]

NARRATIVE: CASE EVENT DATE: 201509
